FAERS Safety Report 19241626 (Version 3)
Quarter: 2021Q4

REPORT INFORMATION
  Report Type: Other
  Country: BR (occurrence: BR)
  Receive Date: 20210511
  Receipt Date: 20211019
  Transmission Date: 20220303
  Serious: Yes (Life-Threatening, Hospitalization, Disabling, Other)
  Sender: FDA-Public Use
  Company Number: BR-002147023-PHHY2018BR145324

PATIENT
  Age: 70 Year
  Sex: Female
  Weight: 62 kg

DRUGS (13)
  1. BUDESONIDE\FORMOTEROL FUMARATE [Suspect]
     Active Substance: BUDESONIDE\FORMOTEROL FUMARATE
     Indication: Asthma
     Route: 065
  2. XOLAIR [Suspect]
     Active Substance: OMALIZUMAB
     Indication: Asthma
     Route: 058
     Dates: start: 20181121
  3. XOLAIR [Suspect]
     Active Substance: OMALIZUMAB
     Route: 058
     Dates: start: 20190227
  4. XOLAIR [Suspect]
     Active Substance: OMALIZUMAB
     Route: 058
     Dates: start: 20190417
  5. XOLAIR [Suspect]
     Active Substance: OMALIZUMAB
     Route: 058
     Dates: start: 20181121
  6. XOLAIR [Suspect]
     Active Substance: OMALIZUMAB
     Route: 058
     Dates: start: 20210427
  7. XOLAIR [Suspect]
     Active Substance: OMALIZUMAB
     Route: 058
     Dates: start: 2018
  8. XOLAIR [Suspect]
     Active Substance: OMALIZUMAB
     Route: 058
     Dates: start: 201912
  9. XOLAIR [Suspect]
     Active Substance: OMALIZUMAB
     Route: 058
  10. RANITIDINE [Suspect]
     Active Substance: RANITIDINE
     Indication: Product used for unknown indication
     Route: 065
  11. FORMOTEROL FUMARATE [Concomitant]
     Active Substance: FORMOTEROL FUMARATE
     Indication: Product used for unknown indication
     Dosage: UNK UNK, QD
     Route: 065
  12. MOMETASONE FUROATE [Concomitant]
     Active Substance: MOMETASONE FUROATE
     Indication: Product used for unknown indication
     Dosage: UNK UNK, QD
     Route: 065
  13. BUDESONIDE\FORMOTEROL FUMARATE [Concomitant]
     Active Substance: BUDESONIDE\FORMOTEROL FUMARATE
     Indication: Product used for unknown indication
     Route: 065

REACTIONS (57)
  - Pulmonary function test decreased [Not Recovered/Not Resolved]
  - Nausea [Recovering/Resolving]
  - Dyspnoea [Not Recovered/Not Resolved]
  - Accident [Unknown]
  - Madarosis [Recovering/Resolving]
  - Hypersensitivity [Unknown]
  - Alveolar lung disease [Unknown]
  - Blister [Unknown]
  - Bone pain [Not Recovered/Not Resolved]
  - Cardio-respiratory arrest [Recovering/Resolving]
  - Cataract [Recovered/Resolved with Sequelae]
  - Oropharyngeal discomfort [Unknown]
  - Nasopharyngitis [Unknown]
  - Feeling cold [Recovered/Resolved]
  - Drug ineffective [Unknown]
  - Bone disorder [Not Recovered/Not Resolved]
  - COVID-19 [Recovered/Resolved with Sequelae]
  - Asthmatic crisis [Recovered/Resolved]
  - Body height decreased [Not Recovered/Not Resolved]
  - Diarrhoea [Unknown]
  - Gait disturbance [Unknown]
  - Dry eye [Recovering/Resolving]
  - Malaise [Recovered/Resolved]
  - Pyrexia [Recovered/Resolved]
  - Application site pain [Recovered/Resolved]
  - Blood glucose increased [Unknown]
  - Intracranial pressure increased [Unknown]
  - Headache [Recovered/Resolved]
  - Headache [Recovered/Resolved]
  - Hypoacusis [Recovering/Resolving]
  - Dysphonia [Unknown]
  - Blood pressure increased [Recovered/Resolved]
  - Blood immunoglobulin E increased [Not Recovered/Not Resolved]
  - Cerebral ischaemia [Recovering/Resolving]
  - Keratoconus [Unknown]
  - Visual impairment [Unknown]
  - Osteoporosis [Unknown]
  - Pain [Recovered/Resolved]
  - Pain in extremity [Unknown]
  - Pulmonary pain [Recovered/Resolved]
  - Adverse drug reaction [Recovering/Resolving]
  - Hypertension [Recovering/Resolving]
  - Lung disorder [Not Recovered/Not Resolved]
  - Lung disorder [Unknown]
  - Retching [Unknown]
  - Rhinorrhoea [Recovered/Resolved]
  - Eating disorder [Recovering/Resolving]
  - Abdominal discomfort [Recovering/Resolving]
  - Peripheral swelling [Not Recovered/Not Resolved]
  - Tachycardia [Unknown]
  - Weight increased [Not Recovered/Not Resolved]
  - Fatigue [Recovering/Resolving]
  - Oxygen saturation decreased [Unknown]
  - Vomiting [Unknown]
  - Feeling abnormal [Unknown]
  - Muscle contractions involuntary [Unknown]
  - Pain [Unknown]

NARRATIVE: CASE EVENT DATE: 20180701
